FAERS Safety Report 4416381-9 (Version None)
Quarter: 2004Q3

REPORT INFORMATION
  Report Type: 
  Country: None (occurrence: None)
  Receive Date: 20040805
  Receipt Date: 20040624
  Transmission Date: 20050211
  Serious: Yes (Hospitalization, Disabling, Congenital Anomaly)
  Sender: FDA-Public Use
  Company Number: SE-GLAXOSMITHKLINE-B0341462A

PATIENT

DRUGS (2)
  1. LAMICTAL [Suspect]
     Indication: EPILEPSY
     Dosage: 100MG PER DAY
  2. TEGRETOL [Suspect]
     Indication: EPILEPSY

REACTIONS (4)
  - CONGENITAL CENTRAL NERVOUS SYSTEM ANOMALY [None]
  - CONGENITAL NEUROLOGICAL DISORDER [None]
  - DISABILITY [None]
  - DRUG EXPOSURE DURING PREGNANCY [None]
